FAERS Safety Report 17137151 (Version 2)
Quarter: 2020Q2

REPORT INFORMATION
  Report Type: Spontaneous
  Country: FR (occurrence: FR)
  Receive Date: 20191210
  Receipt Date: 20200610
  Transmission Date: 20200713
  Serious: Yes (Hospitalization, Congenital Anomaly, Other)
  Sender: FDA-Public Use
  Company Number: FR-LUNDBECK-DKLU3008729

PATIENT
  Sex: Male
  Weight: 3 kg

DRUGS (29)
  1. URBANYL [Suspect]
     Active Substance: CLOBAZAM
     Route: 064
     Dates: start: 20110526, end: 20110802
  2. DEPAKINE CHRONO [Suspect]
     Active Substance: VALPROATE SODIUM
     Route: 064
     Dates: start: 20110105, end: 20110202
  3. LEVETIRACETAM. [Suspect]
     Active Substance: LEVETIRACETAM
     Route: 064
     Dates: start: 20110202, end: 20110301
  4. URBANYL [Suspect]
     Active Substance: CLOBAZAM
     Route: 064
     Dates: start: 20110202, end: 20110301
  5. URBANYL [Suspect]
     Active Substance: CLOBAZAM
     Route: 064
     Dates: start: 20110301, end: 20110526
  6. URBANYL [Suspect]
     Active Substance: CLOBAZAM
     Route: 064
     Dates: start: 20110526, end: 20110802
  7. LEVETIRACETAM. [Suspect]
     Active Substance: LEVETIRACETAM
     Route: 064
     Dates: start: 20110526, end: 20110802
  8. SPECIAFOLDINE [Concomitant]
     Active Substance: FOLIC ACID
     Indication: PRODUCT USED FOR UNKNOWN INDICATION
     Route: 065
     Dates: start: 201101, end: 20110802
  9. FOLIC ACID. [Concomitant]
     Active Substance: FOLIC ACID
     Indication: PRODUCT USED FOR UNKNOWN INDICATION
     Route: 065
     Dates: start: 201101
  10. CELESTENE [Concomitant]
     Indication: PRODUCT USED FOR UNKNOWN INDICATION
     Route: 065
  11. URBANYL [Suspect]
     Active Substance: CLOBAZAM
     Indication: PRODUCT USED FOR UNKNOWN INDICATION
     Route: 064
     Dates: start: 20110105, end: 20110202
  12. URBANYL [Suspect]
     Active Substance: CLOBAZAM
     Route: 064
     Dates: start: 20110202, end: 20110301
  13. DEPAKINE CHRONO [Suspect]
     Active Substance: VALPROATE SODIUM
     Route: 064
     Dates: start: 20110105, end: 20110202
  14. ASPEGIC [ACETYLSALICYLIC ACID] [Suspect]
     Active Substance: ASPIRIN
     Indication: PRODUCT USED FOR UNKNOWN INDICATION
     Route: 064
     Dates: start: 20110202, end: 20110301
  15. LEVETIRACETAM. [Suspect]
     Active Substance: LEVETIRACETAM
     Route: 064
     Dates: start: 20110202, end: 20110301
  16. DEPAKINE CHRONO [Suspect]
     Active Substance: VALPROATE SODIUM
     Route: 064
     Dates: start: 20110105, end: 20110202
  17. DEPAKINE CHRONO [Suspect]
     Active Substance: VALPROATE SODIUM
     Indication: PRODUCT USED FOR UNKNOWN INDICATION
     Route: 064
     Dates: start: 201012, end: 20110802
  18. DEPAKINE CHRONO [Suspect]
     Active Substance: VALPROATE SODIUM
     Route: 064
     Dates: start: 20110105, end: 20110202
  19. DEPAKINE CHRONO [Suspect]
     Active Substance: VALPROATE SODIUM
     Route: 064
     Dates: start: 20110105, end: 20110202
  20. DEPAKINE CHRONO [Suspect]
     Active Substance: VALPROATE SODIUM
     Route: 064
     Dates: start: 20110301, end: 20110526
  21. LEVETIRACETAM. [Suspect]
     Active Substance: LEVETIRACETAM
     Indication: PRODUCT USED FOR UNKNOWN INDICATION
     Route: 064
     Dates: start: 20110105, end: 20110202
  22. LEVETIRACETAM. [Suspect]
     Active Substance: LEVETIRACETAM
     Route: 064
     Dates: start: 20110202, end: 20110301
  23. LEVETIRACETAM. [Suspect]
     Active Substance: LEVETIRACETAM
     Route: 064
     Dates: start: 20110301, end: 20110526
  24. ADALATE [Concomitant]
     Active Substance: NIFEDIPINE
     Indication: PRODUCT USED FOR UNKNOWN INDICATION
     Route: 065
  25. ASPEGIC [ACETYLSALICYLIC ACID] [Suspect]
     Active Substance: ASPIRIN
     Route: 064
     Dates: start: 20110301, end: 20110526
  26. ASPEGIC [ACETYLSALICYLIC ACID] [Suspect]
     Active Substance: ASPIRIN
     Route: 064
     Dates: start: 20110526, end: 20110802
  27. DEPAKINE CHRONO [Suspect]
     Active Substance: VALPROATE SODIUM
     Route: 064
     Dates: start: 20110105, end: 20110202
  28. DEPAKINE CHRONO [Suspect]
     Active Substance: VALPROATE SODIUM
     Dosage: PROGRESSIVE DIMINUTION
     Route: 064
     Dates: start: 20110202, end: 20110301
  29. LEVETIRACETAM. [Suspect]
     Active Substance: LEVETIRACETAM
     Route: 064
     Dates: start: 20110202, end: 20110301

REACTIONS (46)
  - Congenital infection [Unknown]
  - Dysmorphism [Unknown]
  - Abnormal behaviour [Unknown]
  - Malaise [Unknown]
  - Psychomotor hyperactivity [Unknown]
  - Dysgraphia [Unknown]
  - Psychomotor retardation [Unknown]
  - Cardiac murmur functional [Unknown]
  - Head injury [Unknown]
  - Bronchiolitis [Unknown]
  - Clonic convulsion [Unknown]
  - Autism spectrum disorder [Unknown]
  - Epilepsy [Unknown]
  - Congenital hand malformation [Unknown]
  - Cognitive disorder [Unknown]
  - Speech disorder developmental [Unknown]
  - Foetal anticonvulsant syndrome [Unknown]
  - Intellectual disability [Unknown]
  - Motor developmental delay [Unknown]
  - Disturbance in attention [Unknown]
  - Joint laxity [Unknown]
  - Impulsive behaviour [Unknown]
  - Tracheitis [Unknown]
  - School refusal [Unknown]
  - Frustration tolerance decreased [Unknown]
  - Vomiting [Unknown]
  - Laryngitis [Unknown]
  - Syncope [Unknown]
  - Arthropathy [Unknown]
  - Neonatal respiratory distress syndrome [Unknown]
  - Presyncope [Unknown]
  - Behaviour disorder [Unknown]
  - Nasopharyngitis [Unknown]
  - Fall [Unknown]
  - Withdrawal syndrome [Unknown]
  - Dyspraxia [Unknown]
  - Hand-eye coordination impaired [Unknown]
  - Dyslexia [Unknown]
  - Bronchitis [Unknown]
  - Foetal exposure during pregnancy [Recovered/Resolved]
  - Anxiety disorder [Unknown]
  - Ear malformation [Unknown]
  - Regurgitation [Unknown]
  - Oppositional defiant disorder [Unknown]
  - Attention deficit hyperactivity disorder [Unknown]
  - Periorbital oedema [Unknown]

NARRATIVE: CASE EVENT DATE: 2011
